FAERS Safety Report 14034877 (Version 1)
Quarter: 2017Q4

REPORT INFORMATION
  Report Type: Spontaneous
  Country: FR (occurrence: FR)
  Receive Date: 20171003
  Receipt Date: 20171003
  Transmission Date: 20180321
  Serious: Yes (Hospitalization, Other)
  Sender: FDA-Public Use
  Company Number: FR-GLAXOSMITHKLINE-FR2017GSK151683

PATIENT
  Age: 58 Year
  Sex: Female

DRUGS (2)
  1. DOLIPRANE [Concomitant]
     Active Substance: ACETAMINOPHEN
  2. VOLTARENE [Suspect]
     Active Substance: DICLOFENAC SODIUM
     Indication: PAIN IN EXTREMITY
     Dosage: 75 MG, QD

REACTIONS (5)
  - Joint swelling [Unknown]
  - Erythema [Unknown]
  - Blister [Unknown]
  - Staphylococcal infection [Unknown]
  - Endocarditis [Unknown]
